FAERS Safety Report 4307626-4 (Version None)
Quarter: 2004Q1

REPORT INFORMATION
  Report Type: 
  Country: None (occurrence: None)
  Receive Date: 20040226
  Receipt Date: 20040213
  Transmission Date: 20041129
  Serious: Yes (Life-Threatening, Hospitalization, Other)
  Sender: FDA-Public Use
  Company Number: 2003026729

PATIENT
  Age: 57 Year
  Sex: Female

DRUGS (7)
  1. ZITHROMAX [Suspect]
     Indication: INFLUENZA
     Dosage: 250 MG (DAILY), ORAL
     Route: 048
     Dates: start: 20030501, end: 20030501
  2. ROSUVASTATIN (ROSUVASTATIN) [Suspect]
     Indication: DYSLIPIDAEMIA
     Dosage: 10 MG (DAILY), ORAL
     Route: 048
     Dates: start: 20030515, end: 20030603
  3. ATORVASTATIN CALCIUM [Concomitant]
  4. VERAPAMIL HCL [Concomitant]
  5. AMITRIPTYLINE HCL [Concomitant]
  6. ATENOLOL [Concomitant]
  7. ALPRAZOLAM [Concomitant]

REACTIONS (8)
  - ARTHRALGIA [None]
  - HYPERHIDROSIS [None]
  - IDIOPATHIC THROMBOCYTOPENIC PURPURA [None]
  - MYALGIA [None]
  - ORAL MUCOSAL PETECHIAE [None]
  - PETECHIAE [None]
  - PHARYNGOLARYNGEAL PAIN [None]
  - THROMBOCYTOPENIA [None]
